FAERS Safety Report 8452336-5 (Version None)
Quarter: 2012Q2

REPORT INFORMATION
  Report Type: 
  Country: None (occurrence: None)
  Receive Date: 20120620
  Receipt Date: 20120608
  Transmission Date: 20120825
  Serious: Yes (Hospitalization)
  Sender: FDA-Public Use
  Company Number: US-ELI_LILLY_AND_COMPANY-US201106005676

PATIENT
  Sex: Female

DRUGS (3)
  1. FORTEO [Suspect]
     Indication: OSTEOPOROSIS
     Dosage: UNK, UNKNOWN
  2. SIMVASTATIN [Concomitant]
     Indication: PRODUCT USED FOR UNKNOWN INDICATION
  3. FORTEO [Suspect]
     Dosage: 20 UG, QD

REACTIONS (10)
  - VOMITING [None]
  - LOSS OF CONSCIOUSNESS [None]
  - VASOSPASM [None]
  - CEREBRAL SMALL VESSEL ISCHAEMIC DISEASE [None]
  - HYPOACUSIS [None]
  - MIGRAINE [None]
  - FEELING ABNORMAL [None]
  - SYNCOPE [None]
  - RESPIRATORY ARREST [None]
  - ANXIETY [None]
